FAERS Safety Report 4621145-7 (Version None)
Quarter: 2005Q1

REPORT INFORMATION
  Report Type: 
  Country: None (occurrence: None)
  Receive Date: 20050328
  Receipt Date: 20050316
  Transmission Date: 20050727
  Serious: Yes (Life-Threatening)
  Sender: FDA-Public Use
  Company Number: 2005AC00148

PATIENT
  Age: 0 Day
  Sex: Male
  Weight: 4.01 kg

DRUGS (1)
  1. MEPIVACAINE HCL [Suspect]
     Indication: ANAESTHESIA
     Dosage: 10 ML ONCE TPL
     Route: 064

REACTIONS (14)
  - ANAESTHETIC COMPLICATION NEONATAL [None]
  - APGAR SCORE LOW [None]
  - BLOOD GLUCOSE DECREASED [None]
  - BLOOD PH INCREASED [None]
  - CONVULSION NEONATAL [None]
  - DRUG EXPOSURE DURING PREGNANCY [None]
  - DRUG LEVEL INCREASED [None]
  - DRUG TOXICITY [None]
  - HYPOTONIA NEONATAL [None]
  - MEDICATION ERROR [None]
  - NEONATAL DISORDER [None]
  - PUPIL FIXED [None]
  - TONIC CONVULSION [None]
  - VACUUM EXTRACTOR DELIVERY [None]
